FAERS Safety Report 8320267-7 (Version None)
Quarter: 2012Q2

REPORT INFORMATION
  Report Type: 
  Country: None (occurrence: None)
  Receive Date: 20120426
  Receipt Date: 20120426
  Transmission Date: 20120825
  Serious: Yes (Hospitalization)
  Sender: FDA-Public Use
  Company Number: None

PATIENT
  Age: 44 Year
  Sex: Male
  Weight: 116.1208 kg

DRUGS (2)
  1. PREGABALIN [Suspect]
     Indication: ALCOHOLISM
     Dosage: 300, 150MG, 2X/DAY, ORAL
     Route: 048
  2. DULOXETINE HYDROCHLORIDE [Suspect]
     Indication: ALCOHOLISM
     Dosage: 40MG, 40MG, 2X/DAY, ORAL
     Route: 048

REACTIONS (4)
  - HEAD INJURY [None]
  - ACCIDENT [None]
  - LOSS OF CONSCIOUSNESS [None]
  - FALL [None]
